FAERS Safety Report 10764660 (Version 3)
Quarter: 2015Q4

REPORT INFORMATION
  Report Type: Spontaneous
  Country: CA (occurrence: CA)
  Receive Date: 20150205
  Receipt Date: 20151023
  Transmission Date: 20160304
  Serious: Yes (Other)
  Sender: FDA-Public Use
  Company Number: CA-ROCHE-1532832

PATIENT

DRUGS (11)
  1. PHENYTOIN. [Concomitant]
     Active Substance: PHENYTOIN
  2. HALOPERIDOL. [Concomitant]
     Active Substance: HALOPERIDOL
  3. MIDAZOLAM [Suspect]
     Active Substance: MIDAZOLAM\MIDAZOLAM HYDROCHLORIDE
     Indication: PRODUCT USED FOR UNKNOWN INDICATION
     Route: 030
  4. QUETIAPINE [Concomitant]
     Active Substance: QUETIAPINE
  5. VALPROIC ACID. [Concomitant]
     Active Substance: VALPROIC ACID
  6. CLONIDINE. [Concomitant]
     Active Substance: CLONIDINE
  7. DIAZEPAM. [Suspect]
     Active Substance: DIAZEPAM
     Indication: PRODUCT USED FOR UNKNOWN INDICATION
     Route: 065
  8. LORAZEPAM. [Suspect]
     Active Substance: LORAZEPAM
     Indication: PRODUCT USED FOR UNKNOWN INDICATION
     Route: 065
  9. PHENOBARBITAL. [Concomitant]
     Active Substance: PHENOBARBITAL
  10. CLONAZEPAM. [Suspect]
     Active Substance: CLONAZEPAM
     Indication: PRODUCT USED FOR UNKNOWN INDICATION
     Route: 048
  11. LOXAPINE. [Concomitant]
     Active Substance: LOXAPINE

REACTIONS (3)
  - Sedation [Unknown]
  - Fall [Unknown]
  - Respiratory depression [Unknown]
